FAERS Safety Report 21610917 (Version 1)
Quarter: 2022Q4

REPORT INFORMATION
  Report Type: Spontaneous
  Country: US (occurrence: None)
  Receive Date: 20221117
  Receipt Date: 20221117
  Transmission Date: 20230113
  Serious: Yes (Hospitalization, Other)
  Sender: FDA-Public Use
  Company Number: None

PATIENT
  Age: 57 Year
  Sex: Female
  Weight: 83.2 kg

DRUGS (4)
  1. SEMAGLUTIDE [Suspect]
     Active Substance: SEMAGLUTIDE
     Indication: Type 2 diabetes mellitus
     Dosage: OTHER FREQUENCY : WEEKLY;?
     Route: 058
     Dates: start: 20220812, end: 20221027
  2. LISINOPRIL [Concomitant]
     Active Substance: LISINOPRIL
     Dates: start: 20170603
  3. FENOFIBRATE [Concomitant]
     Active Substance: FENOFIBRATE
     Dates: start: 20170604
  4. FLUOXETINE [Concomitant]
     Active Substance: FLUOXETINE HYDROCHLORIDE
     Dates: start: 20170604

REACTIONS (3)
  - Pancreatitis necrotising [None]
  - Mesenteric vein thrombosis [None]
  - Alcohol use [None]

NARRATIVE: CASE EVENT DATE: 20221027
